FAERS Safety Report 15325630 (Version 1)
Quarter: 2018Q3

REPORT INFORMATION
  Report Type: Spontaneous
  Country: US (occurrence: US)
  Receive Date: 20180828
  Receipt Date: 20180828
  Transmission Date: 20181010
  Serious: Yes (Hospitalization)
  Sender: FDA-Public Use
  Company Number: PHHY2018US076572

PATIENT
  Age: 64 Year
  Sex: Female

DRUGS (1)
  1. FLUTICASONE PROPIONATE. [Suspect]
     Active Substance: FLUTICASONE PROPIONATE
     Indication: RHINITIS ALLERGIC
     Dosage: 50 MG, UNK
     Route: 045
     Dates: start: 2012, end: 201508

REACTIONS (7)
  - Paraesthesia [Not Recovered/Not Resolved]
  - Oedema peripheral [Unknown]
  - Secretion discharge [Unknown]
  - Pain [Unknown]
  - Erythema [Unknown]
  - Nocardiosis [Recovered/Resolved]
  - Infective tenosynovitis [Recovering/Resolving]
